FAERS Safety Report 5055783-7 (Version None)
Quarter: 2006Q3

REPORT INFORMATION
  Report Type: 
  Country: None (occurrence: None)
  Receive Date: 20060714
  Receipt Date: 20060705
  Transmission Date: 20061208
  Serious: Yes (Hospitalization)
  Sender: FDA-Public Use
  Company Number: 2006-07-0377

PATIENT
  Sex: Male

DRUGS (1)
  1. PEG-INTRON [Suspect]
     Indication: HEPATITIS C
     Dosage: SUBCUTANEOUS
     Route: 058
     Dates: start: 20060624

REACTIONS (6)
  - DEPRESSION [None]
  - FATIGUE [None]
  - HAEMATEMESIS [None]
  - INSOMNIA [None]
  - PYREXIA [None]
  - RED BLOOD CELL COUNT DECREASED [None]
